FAERS Safety Report 18142551 (Version 1)
Quarter: 2020Q3

REPORT INFORMATION
  Report Type: Spontaneous
  Country: US (occurrence: US)
  Receive Date: 20200812
  Receipt Date: 20200812
  Transmission Date: 20201103
  Serious: No
  Sender: FDA-Public Use
  Company Number: US-ELI_LILLY_AND_COMPANY-US202008002452

PATIENT
  Sex: Female

DRUGS (1)
  1. DULAGLUTIDE 0.75MG [Suspect]
     Active Substance: DULAGLUTIDE
     Indication: BLOOD GLUCOSE
     Dosage: 0.75 MG, UNKNOWN
     Route: 058
     Dates: start: 202007

REACTIONS (1)
  - Accidental underdose [Unknown]
